FAERS Safety Report 5746558-1 (Version None)
Quarter: 2008Q2

REPORT INFORMATION
  Report Type: 
  Country: None (occurrence: None)
  Receive Date: 20080520
  Receipt Date: 20080520
  Transmission Date: 20081010
  Serious: Yes (Other)
  Sender: FDA-Public Use
  Company Number: None

PATIENT
  Sex: Female
  Weight: 58.9676 kg

DRUGS (1)
  1. ACCUTANE [Suspect]
     Indication: ACNE
     Dosage: 40MG X 1 MOUTH ONCE DAILY ORAL INCREASED TO 60 MG ONCE DAILY ORAL
     Route: 048
     Dates: start: 20040426

REACTIONS (1)
  - DEEP VEIN THROMBOSIS [None]
